FAERS Safety Report 10158418 (Version 1)
Quarter: 2014Q2

REPORT INFORMATION
  Report Type: Spontaneous
  Country: US (occurrence: US)
  Receive Date: 20140507
  Receipt Date: 20140507
  Transmission Date: 20141212
  Serious: No
  Sender: FDA-Public Use
  Company Number: US-009507513-2012SP019091

PATIENT
  Age: 3 Year
  Sex: Female

DRUGS (2)
  1. CLARITIN ORAL SOLUTION [Suspect]
     Indication: CONJUNCTIVITIS
     Dosage: 5 MG, QAM
     Route: 048
     Dates: start: 20120307
  2. CLARITIN ORAL SOLUTION [Suspect]
     Indication: MEDICAL OBSERVATION
     Dosage: 5 MG, QPM
     Route: 048
     Dates: start: 20120307

REACTIONS (2)
  - Overdose [Unknown]
  - Off label use [Unknown]
